FAERS Safety Report 14786176 (Version 1)
Quarter: 2018Q2

REPORT INFORMATION
  Report Type: Spontaneous
  Country: DE (occurrence: DE)
  Receive Date: 20180420
  Receipt Date: 20180420
  Transmission Date: 20180711
  Serious: Yes (Hospitalization, Other)
  Sender: FDA-Public Use
  Company Number: PHHY2018DE067495

PATIENT
  Age: 53 Year
  Sex: Male

DRUGS (23)
  1. QUETIAPINE. [Concomitant]
     Active Substance: QUETIAPINE
     Dosage: 200 MG, QD
     Route: 048
     Dates: start: 20170714, end: 20170720
  2. DIAZEPAM. [Concomitant]
     Active Substance: DIAZEPAM
     Dosage: 37.5 MG, ONCE
     Route: 048
     Dates: start: 20170718
  3. DIAZEPAM. [Concomitant]
     Active Substance: DIAZEPAM
     Dosage: 30 MG, QD
     Route: 048
     Dates: start: 20170808
  4. PANTOPRAZOLE [Concomitant]
     Active Substance: PANTOPRAZOLE
     Indication: PRODUCT USED FOR UNKNOWN INDICATION
     Dosage: 40 MG, QD
     Route: 048
     Dates: start: 20170715
  5. AMITRIPTYLINE [Suspect]
     Active Substance: AMITRIPTYLINE
     Dosage: 50 MG, QD
     Route: 048
     Dates: start: 20170820, end: 20170822
  6. QUETIAPINE. [Concomitant]
     Active Substance: QUETIAPINE
     Dosage: 300 MG, QD
     Route: 048
     Dates: start: 20170101, end: 20170330
  7. RAMIPRIL. [Concomitant]
     Active Substance: RAMIPRIL
     Indication: PRODUCT USED FOR UNKNOWN INDICATION
     Dosage: 5 MG, QD, LONG TERM TREATMENT;
     Route: 048
  8. VENLAFAXINE [Suspect]
     Active Substance: VENLAFAXINE HYDROCHLORIDE
     Dosage: 150 MG, QD
     Route: 048
     Dates: start: 20170724, end: 20170727
  9. AMITRIPTYLINE [Suspect]
     Active Substance: AMITRIPTYLINE
     Indication: PRODUCT USED FOR UNKNOWN INDICATION
     Dosage: 25 MG, QD
     Route: 048
     Dates: start: 20170817, end: 20170819
  10. AMITRIPTYLINE [Suspect]
     Active Substance: AMITRIPTYLINE
     Dosage: 75 MG, QD
     Route: 048
     Dates: start: 20170823
  11. QUETIAPINE. [Concomitant]
     Active Substance: QUETIAPINE
     Indication: PRODUCT USED FOR UNKNOWN INDICATION
     Dosage: 150 MG, QD
     Route: 048
     Dates: start: 20170101, end: 20170725
  12. QUETIAPINE. [Concomitant]
     Active Substance: QUETIAPINE
     Dosage: 250 MG, QD
     Route: 048
     Dates: start: 20170721, end: 20170726
  13. VENLAFAXINE [Suspect]
     Active Substance: VENLAFAXINE HYDROCHLORIDE
     Indication: PRODUCT USED FOR UNKNOWN INDICATION
     Dosage: 75 MG, QD
     Route: 048
     Dates: start: 20170721, end: 20170723
  14. ASPIRIN. [Concomitant]
     Active Substance: ASPIRIN
     Indication: ANALGESIC THERAPY
     Dosage: 100 MG, QD, LONG TERM TREATMENT;
     Route: 048
  15. DIAZEPAM. [Concomitant]
     Active Substance: DIAZEPAM
     Indication: PRODUCT USED FOR UNKNOWN INDICATION
     Dosage: 22.5 MG, QD
     Route: 048
     Dates: start: 20170501, end: 20170717
  16. VENLAFAXINE [Suspect]
     Active Substance: VENLAFAXINE HYDROCHLORIDE
     Dosage: 300 MG, QD
     Route: 048
     Dates: start: 20170808
  17. DIAZEPAM. [Concomitant]
     Active Substance: DIAZEPAM
     Dosage: 40 MG, QD
     Route: 048
     Dates: start: 20170719, end: 20170801
  18. VENLAFAXINE [Suspect]
     Active Substance: VENLAFAXINE HYDROCHLORIDE
     Dosage: 225 MG, QD
     Route: 048
     Dates: start: 20170728, end: 20170809
  19. QUETIAPINE. [Concomitant]
     Active Substance: QUETIAPINE
     Dosage: 300 MG, QD
     Route: 048
     Dates: start: 20170727
  20. DIAZEPAM. [Concomitant]
     Active Substance: DIAZEPAM
     Dosage: 35 MG, QD
     Route: 048
     Dates: start: 20170802, end: 20170807
  21. POLYSPECTRAN [Concomitant]
     Indication: OPHTHALMOLOGIC TREATMENT
     Dosage: UNK (MG)
     Route: 048
  22. QUETIAPINE. [Concomitant]
     Active Substance: QUETIAPINE
     Dosage: 200 MG, QD
     Route: 048
     Dates: start: 20170726
  23. NEBIVOLOL. [Concomitant]
     Active Substance: NEBIVOLOL
     Indication: PRODUCT USED FOR UNKNOWN INDICATION
     Dosage: 5 MG, QD (LONG TERM TREATMENT)
     Route: 048

REACTIONS (2)
  - Hallucination [Recovered/Resolved]
  - Delusion [Recovered/Resolved]

NARRATIVE: CASE EVENT DATE: 20170824
